FAERS Safety Report 19944740 (Version 12)
Quarter: 2022Q2

REPORT INFORMATION
  Report Type: Report from Study
  Country: US (occurrence: None)
  Receive Date: 20211012
  Receipt Date: 20220628
  Transmission Date: 20220720
  Serious: Yes (Death, Hospitalization)
  Sender: FDA-Public Use
  Company Number: US-ROCHE-2928479

PATIENT
  Age: 72 Year
  Sex: Female
  Weight: 69.6 kg

DRUGS (36)
  1. PLACEBO [Suspect]
     Active Substance: UNSPECIFIED INGREDIENT
     Indication: Bile duct cancer
     Dosage: 21/SEP/2021: START DATE OF MOST RECENT DOSE OF BEVACIZUMAB PRIOR TO SAE
     Route: 042
     Dates: start: 20210810
  2. ATEZOLIZUMAB [Suspect]
     Active Substance: ATEZOLIZUMAB
     Indication: Bile duct cancer
     Dosage: 21/SEP/2021 AND 23/NOV/2021:START DATE OF MOST RECENT DOSE(1200 MG) OF ATEZOLIZUMAB PRIOR TO SAE
     Route: 041
     Dates: start: 20210810
  3. CISPLATIN [Suspect]
     Active Substance: CISPLATIN
     Indication: Bile duct cancer
     Dosage: 17/AUG/2021:START DATE OF MOST RECENT DOSE(43 MG) OF CISPLATIN PRIOR TO SAE
     Route: 042
     Dates: start: 20210810
  4. GEMCITABINE [Suspect]
     Active Substance: GEMCITABINE
     Indication: Bile duct cancer
     Dosage: 28/SEP/2021 AND 23/NOV/2021:START DATE OF MOST RECENT DOSE(1368 MG) OF GEMCITABINE PRIOR TO SAE
     Route: 042
     Dates: start: 20210810
  5. COZAAR [Concomitant]
     Active Substance: LOSARTAN POTASSIUM
     Indication: Hypertension
     Dates: start: 20210111, end: 20211207
  6. PRILOSEC [Concomitant]
     Active Substance: OMEPRAZOLE MAGNESIUM
     Indication: Varices oesophageal
     Dates: start: 20210402, end: 20211207
  7. ZOCOR [Concomitant]
     Active Substance: SIMVASTATIN
     Indication: Prophylaxis
     Dosage: PROPHYLACTIC FOR HIGH CHOLESTEROL
     Dates: start: 20210618, end: 20211207
  8. INDERAL [Concomitant]
     Active Substance: PROPRANOLOL HYDROCHLORIDE
     Indication: Varices oesophageal
     Dates: start: 20210728, end: 20211207
  9. ZOFRAN [Concomitant]
     Active Substance: ONDANSETRON HYDROCHLORIDE
     Dosage: NAUSEA/VOMITING PROPHYLAXIS
     Dates: start: 20210810, end: 20211207
  10. BENADRYL [Concomitant]
     Active Substance: DIPHENHYDRAMINE HYDROCHLORIDE
     Indication: Prophylaxis
     Dosage: PROPHYLACTIC FOR RASH/PRURITIS
     Route: 048
     Dates: start: 20210906, end: 20211207
  11. KENALOG [Concomitant]
     Active Substance: TRIAMCINOLONE ACETONIDE
     Indication: Pruritus
     Route: 061
     Dates: start: 20210907, end: 20211208
  12. KENALOG [Concomitant]
     Active Substance: TRIAMCINOLONE ACETONIDE
     Indication: Rash maculo-papular
  13. CHOLECALCIFEROL [Concomitant]
     Active Substance: CHOLECALCIFEROL
     Dates: end: 20211207
  14. TYLENOL [Concomitant]
     Active Substance: ACETAMINOPHEN
     Indication: Prophylaxis
     Dates: start: 20210921
  15. DEMEROL [Concomitant]
     Active Substance: MEPERIDINE HYDROCHLORIDE
     Indication: Prophylaxis
     Dates: start: 20210921
  16. LASIX [Concomitant]
     Active Substance: FUROSEMIDE
     Indication: Oedema peripheral
     Dates: start: 20211019, end: 20211207
  17. ALDACTONE [Concomitant]
     Active Substance: SPIRONOLACTONE
     Indication: Oedema
     Dates: start: 20211109, end: 20211205
  18. KEFLEX [Concomitant]
     Active Substance: CEPHALEXIN
     Indication: Urinary tract infection
     Dates: start: 20211129, end: 20211207
  19. ROCEPHIN [Concomitant]
     Active Substance: CEFTRIAXONE SODIUM
     Indication: Abdominal pain
     Dates: start: 20211003, end: 20211207
  20. NORCO [Concomitant]
     Active Substance: ACETAMINOPHEN\HYDROCODONE BITARTRATE
     Indication: Pain
     Dosage: 5-35 MG 1 TABLET
     Dates: start: 20211207, end: 20211207
  21. MORPHINE [Concomitant]
     Active Substance: MORPHINE
     Indication: Pain
     Dates: start: 20211206, end: 20211206
  22. SODIUM CHLORIDE [Concomitant]
     Active Substance: SODIUM CHLORIDE
     Route: 042
     Dates: start: 20211206, end: 20211206
  23. SODIUM BICARBONATE [Concomitant]
     Active Substance: SODIUM BICARBONATE
     Dosage: 50 MEQ
     Dates: start: 20211205, end: 20211205
  24. FLAGYL [Concomitant]
     Active Substance: METRONIDAZOLE\METRONIDAZOLE HYDROCHLORIDE
     Route: 042
     Dates: start: 20211205, end: 20211207
  25. LACTATED RINGERS SOLUTION [Concomitant]
     Active Substance: CALCIUM CHLORIDE\POTASSIUM CHLORIDE\SODIUM CHLORIDE\SODIUM LACTATE
     Route: 042
     Dates: start: 20211206, end: 20211206
  26. ALBUMIN HUMAN [Concomitant]
     Active Substance: ALBUMIN HUMAN
     Dosage: 25 G
     Route: 042
     Dates: start: 20211207, end: 20211207
  27. ALBUMIN HUMAN [Concomitant]
     Active Substance: ALBUMIN HUMAN
     Route: 042
     Dates: start: 20211206, end: 20211206
  28. D50W [Concomitant]
     Dates: start: 20211205, end: 20211205
  29. SUBLIMAZE [Concomitant]
     Active Substance: FENTANYL CITRATE
     Dates: start: 20211205, end: 20211205
  30. HUMULIN R [Concomitant]
     Active Substance: INSULIN HUMAN
     Dosage: 8 UNITS
     Dates: start: 20211205, end: 20211205
  31. OMNIPAQUE [Concomitant]
     Active Substance: IOHEXOL
     Indication: Computerised tomogram
     Dates: start: 20211205, end: 20211205
  32. CIPROFLOXACIN [Concomitant]
     Active Substance: CIPROFLOXACIN
     Dates: start: 20211008, end: 20211107
  33. METRONIDAZOLE [Concomitant]
     Active Substance: METRONIDAZOLE
     Dates: start: 20211008, end: 20211107
  34. ONDANSETRON [Concomitant]
     Active Substance: ONDANSETRON
  35. DIPHENHYDRAMINE [Concomitant]
     Active Substance: DIPHENHYDRAMINE
     Dates: start: 20210906, end: 20211207
  36. TRIAMCINOLONE [Concomitant]
     Active Substance: TRIAMCINOLONE
     Dates: start: 20210907, end: 20211208

REACTIONS (3)
  - Diverticulitis [Fatal]
  - Enterocolitis [Recovered/Resolved]
  - Diverticulitis [Recovered/Resolved]

NARRATIVE: CASE EVENT DATE: 20211004
